FAERS Safety Report 14586673 (Version 1)
Quarter: 2018Q1

REPORT INFORMATION
  Report Type: Spontaneous
  Country: HR (occurrence: HR)
  Receive Date: 20180301
  Receipt Date: 20180301
  Transmission Date: 20180509
  Serious: Yes (Other)
  Sender: FDA-Public Use
  Company Number: HR-AMGEN-HRVSP2018026009

PATIENT
  Sex: Female

DRUGS (18)
  1. CONCOR [Concomitant]
     Active Substance: BISOPROLOL FUMARATE
     Dosage: 2.5 MG, (IN THE MORNING) QD
  2. PROLIA [Suspect]
     Active Substance: DENOSUMAB
     Indication: OSTEOPOROSIS
     Dosage: 60 MG, Q6MO
     Route: 058
     Dates: start: 201606
  3. DECORTIN [Concomitant]
     Active Substance: PREDNISONE
     Dosage: 40 MG, QD
     Dates: start: 20171128
  4. MESTINON [Concomitant]
     Active Substance: PYRIDOSTIGMINE BROMIDE
     Indication: MYASTHENIA GRAVIS
  5. ALDACTONE [Concomitant]
     Active Substance: SPIRONOLACTONE
     Dosage: 25 MG, EVERY THIRD DAY
  6. TRESIBA [Concomitant]
     Active Substance: INSULIN DEGLUDEC
     Dosage: 8-12 IU, UNK
  7. TRIPLIXAM [Concomitant]
     Active Substance: AMLODIPINE BESYLATE\INDAPAMIDE\PERINDOPRIL ARGININE
     Dosage: 10 MG, QD
  8. PRAXITEN [Concomitant]
     Active Substance: OXAZEPAM
     Dosage: 15 MG, QD (IN EVERY EVENING
  9. DECORTIN [Concomitant]
     Active Substance: PREDNISONE
     Indication: MYASTHENIA GRAVIS
     Dosage: 10 MG, UNK
     Dates: start: 201706
  10. DECORTIN [Concomitant]
     Active Substance: PREDNISONE
     Dosage: 30 MG, QD
  11. JANUVIA [Concomitant]
     Active Substance: SITAGLIPTIN PHOSPHATE
     Dosage: 100 MG, QD
  12. NOVORAPID [Concomitant]
     Active Substance: INSULIN ASPART
     Dosage: 10-14 IU, UNK
     Dates: start: 2012
  13. ALDACTONE [Concomitant]
     Active Substance: SPIRONOLACTONE
     Indication: HYPERTENSION
     Dosage: 25 MG, QOD
  14. TRIPLIXAM [Concomitant]
     Active Substance: AMLODIPINE BESYLATE\INDAPAMIDE\PERINDOPRIL ARGININE
     Dosage: 2.5 MG, QD
  15. PHYSIOTENS [Concomitant]
     Active Substance: MOXONIDINE
     Dosage: 0.4 MG, QD (BEFORE SLEEP)
  16. ASPIRIN PROTECT [Concomitant]
     Active Substance: ASPIRIN
     Dosage: 100 MG, QD
  17. FUROSEMID [Concomitant]
     Active Substance: FUROSEMIDE
     Dosage: 40 MG, AS NECESSARY (IN AVERAGE ONCE PER WEEK)
  18. CONTROLOC [Concomitant]
     Active Substance: PANTOPRAZOLE SODIUM
     Dosage: 20 MG, QD

REACTIONS (9)
  - Umbilical hernia [Unknown]
  - Nephrolithiasis [Unknown]
  - Myasthenia gravis [Not Recovered/Not Resolved]
  - Escherichia urinary tract infection [Unknown]
  - Cholelithiasis [Unknown]
  - Oedema peripheral [Unknown]
  - Thrombocytosis [Unknown]
  - Acute kidney injury [Unknown]
  - Leukocytosis [Unknown]

NARRATIVE: CASE EVENT DATE: 2017
